FAERS Safety Report 17035783 (Version 1)
Quarter: 2019Q4

REPORT INFORMATION
  Report Type: Spontaneous
  Country: US (occurrence: US)
  Receive Date: 20191114
  Receipt Date: 20191114
  Transmission Date: 20200122
  Serious: Yes (Other)
  Sender: FDA-Public Use
  Company Number: None

PATIENT
  Age: 79 Year
  Sex: Female
  Weight: 87.75 kg

DRUGS (14)
  1. VITAMIN E [Concomitant]
     Active Substance: .ALPHA.-TOCOPHEROL
  2. FISH OIL [Concomitant]
     Active Substance: FISH OIL
  3. VITAMIN C [Concomitant]
     Active Substance: ASCORBIC ACID
  4. COQ10 [Concomitant]
     Active Substance: UBIDECARENONE
  5. TURMERIC [Concomitant]
     Active Substance: HERBALS\TURMERIC
  6. CALCIUM [Concomitant]
     Active Substance: CALCIUM
  7. MAGNESIUM [Concomitant]
     Active Substance: MAGNESIUM
  8. GINGKO BILOBA [Concomitant]
     Active Substance: GINKGO
  9. VIT. D3 [Concomitant]
  10. BETA CAROTENE. [Concomitant]
     Active Substance: BETA CAROTENE
  11. OLMESARTAN MEDOXOMIL AND HYDROCHLOROTHIAZIDE [Suspect]
     Active Substance: HYDROCHLOROTHIAZIDE\OLMESARTAN MEDOXOMIL
     Indication: BLOOD PRESSURE MEASUREMENT
     Dosage: ?          QUANTITY:1 TABLET(S);?
     Route: 048
  12. SIMVASTATIN. [Concomitant]
     Active Substance: SIMVASTATIN
  13. VIT. B COMPLEX [Concomitant]
  14. MATURE MULTI VITAMIN [Concomitant]

REACTIONS (5)
  - Asthenia [None]
  - Hypertension [None]
  - Suspected counterfeit product [None]
  - Fatigue [None]
  - Product quality issue [None]

NARRATIVE: CASE EVENT DATE: 20191104
